FAERS Safety Report 7832170-7 (Version None)
Quarter: 2011Q4

REPORT INFORMATION
  Report Type: 
  Country: None (occurrence: None)
  Receive Date: 20111022
  Receipt Date: 20111005
  Transmission Date: 20120403
  Serious: Yes (Hospitalization, Other)
  Sender: FDA-Public Use
  Company Number: US-BAYER-2011-048499

PATIENT
  Age: 29 Year
  Sex: Female
  Weight: 66 kg

DRUGS (4)
  1. PHENTERMINE [Concomitant]
     Dosage: 37.5 MG, UNK
     Route: 048
  2. YAZ [Suspect]
     Indication: CONTRACEPTION
     Dosage: UNK
     Dates: start: 20080601, end: 20090101
  3. SIMVASTATIN [Concomitant]
     Indication: BLOOD CHOLESTEROL INCREASED
  4. ZOLPIDEM [Concomitant]
     Dosage: 10 MG, HS
     Route: 048

REACTIONS (5)
  - INJURY [None]
  - PAIN [None]
  - CHOLELITHIASIS [None]
  - GALLBLADDER DISORDER [None]
  - CHOLECYSTITIS [None]
